FAERS Safety Report 6770284-3 (Version None)
Quarter: 2010Q2

REPORT INFORMATION
  Report Type: 
  Country: None (occurrence: None)
  Receive Date: 20100615
  Receipt Date: 20100607
  Transmission Date: 20101027
  Serious: Yes (Death)
  Sender: FDA-Public Use
  Company Number: JP-BRISTOL-MYERS SQUIBB COMPANY-15144546

PATIENT
  Age: 76 Year
  Sex: Male

DRUGS (2)
  1. ERBITUX [Suspect]
     Indication: COLORECTAL CANCER
     Dosage: 250 MG/M2 11MAY10-11MAY10
     Route: 042
     Dates: start: 20100420, end: 20100420
  2. IRINOTECAN HCL [Concomitant]
     Indication: COLORECTAL CANCER

REACTIONS (1)
  - ASCITES [None]
